FAERS Safety Report 4642283-9 (Version None)
Quarter: 2005Q2

REPORT INFORMATION
  Report Type: 
  Country: None (occurrence: None)
  Receive Date: 20050421
  Receipt Date: 20050404
  Transmission Date: 20051028
  Serious: Yes (Death)
  Sender: FDA-Public Use
  Company Number: 2005-DE-01311GD

PATIENT
  Age: 54 Year
  Sex: Female
  Weight: 59 kg

DRUGS (9)
  1. MORPHINE [Suspect]
     Indication: POST PROCEDURAL PAIN
     Dosage: SEE IMAGE
  2. BUPIVACAINE [Suspect]
     Indication: POST PROCEDURAL PAIN
     Dosage: SEE IMAGE
  3. RINGERS INJECTION IN PLASTIC CONTAINER [Suspect]
     Indication: FLUID REPLACEMENT
     Dosage: 1100 ML, IV
     Route: 042
  4. LIDOCAINE [Concomitant]
  5. GLYCOPYRROLATE [Concomitant]
  6. FENTANYL [Concomitant]
  7. THIOPENTAL SODIUM [Concomitant]
  8. ATRACURIUM BESYLATE [Concomitant]
  9. ISOFLURANE [Concomitant]

REACTIONS (20)
  - APALLIC SYNDROME [None]
  - AREFLEXIA [None]
  - BLOOD PRESSURE FLUCTUATION [None]
  - BRAIN OEDEMA [None]
  - CARDIAC ARREST [None]
  - CHOKING [None]
  - CIRCULATORY COLLAPSE [None]
  - CONDITION AGGRAVATED [None]
  - DIZZINESS [None]
  - LETHARGY [None]
  - LOSS OF CONSCIOUSNESS [None]
  - MYDRIASIS [None]
  - NAUSEA [None]
  - NEOPLASM SWELLING [None]
  - POST PROCEDURAL COMPLICATION [None]
  - PROCEDURAL COMPLICATION [None]
  - PUPILLARY REFLEX IMPAIRED [None]
  - RESPIRATORY ARREST [None]
  - SINUS BRADYCARDIA [None]
  - SOMNOLENCE [None]
